FAERS Safety Report 6522945-9 (Version None)
Quarter: 2009Q4

REPORT INFORMATION
  Report Type: 
  Country: None (occurrence: None)
  Receive Date: 20091230
  Receipt Date: 20091222
  Transmission Date: 20100525
  Serious: Yes (Other)
  Sender: FDA-Public Use
  Company Number: AU-BAXTER-2009BH019855

PATIENT
  Sex: Male

DRUGS (3)
  1. DEXTROSE [Suspect]
     Indication: PARENTERAL NUTRITION
     Route: 042
     Dates: start: 20091221
  2. TRAVASOL 10% [Suspect]
     Indication: PARENTERAL NUTRITION
     Route: 042
     Dates: start: 20091221
  3. WATER FOR INJECTION [Suspect]
     Indication: PARENTERAL NUTRITION
     Route: 042
     Dates: start: 20091221

REACTIONS (4)
  - DEVICE RELATED INFECTION [None]
  - HAEMOGLOBIN DECREASED [None]
  - HAEMOLYSIS [None]
  - RENAL IMPAIRMENT [None]
